FAERS Safety Report 9799571 (Version 2)
Quarter: 2015Q3

REPORT INFORMATION
  Report Type: Spontaneous
  Country: US (occurrence: US)
  Receive Date: 20140106
  Receipt Date: 20150806
  Transmission Date: 20151125
  Serious: No
  Sender: FDA-Public Use
  Company Number: US-GILEAD-2010-0030276

PATIENT
  Age: 77 Year
  Sex: Female

DRUGS (14)
  1. SPIRONOLACTONE. [Concomitant]
     Active Substance: SPIRONOLACTONE
  2. LASIX [Concomitant]
     Active Substance: FUROSEMIDE
  3. DILTIAZEM [Concomitant]
     Active Substance: DILTIAZEM
  4. LEVOXYL [Concomitant]
     Active Substance: LEVOTHYROXINE SODIUM
  5. PREMARIN [Concomitant]
     Active Substance: ESTROGENS, CONJUGATED
  6. LETAIRIS [Suspect]
     Active Substance: AMBRISENTAN
     Indication: PULMONARY ARTERIAL HYPERTENSION
     Route: 048
     Dates: start: 20100515
  7. WARFARIN [Concomitant]
     Active Substance: WARFARIN
  8. CELEBREX [Concomitant]
     Active Substance: CELECOXIB
  9. LIPITOR [Concomitant]
     Active Substance: ATORVASTATIN CALCIUM
  10. DIOVAN [Concomitant]
     Active Substance: VALSARTAN
  11. REVATIO [Concomitant]
     Active Substance: SILDENAFIL CITRATE
  12. POTASSIUM [Concomitant]
     Active Substance: POTASSIUM
  13. MAG-OXIDE [Concomitant]
  14. HCTZ [Concomitant]
     Active Substance: HYDROCHLOROTHIAZIDE

REACTIONS (1)
  - Joint swelling [Not Recovered/Not Resolved]

NARRATIVE: CASE EVENT DATE: 20100515
